FAERS Safety Report 8120962-9 (Version None)
Quarter: 2012Q1

REPORT INFORMATION
  Report Type: 
  Country: None (occurrence: None)
  Receive Date: 20120208
  Receipt Date: 20120130
  Transmission Date: 20120608
  Serious: Yes (Hospitalization, Disabling, Other)
  Sender: FDA-Public Use
  Company Number: DE-BAYER-2011-120588

PATIENT
  Age: 20 Year
  Sex: Female

DRUGS (3)
  1. DROSPIRENONE AND ETHINYL ESTRADIOL [Suspect]
     Dosage: UNK
     Route: 048
     Dates: start: 20060918, end: 20080530
  2. NEXIUM [Concomitant]
  3. DIPYRONE TAB [Concomitant]
     Dosage: 30 GTT, UNK

REACTIONS (8)
  - PULMONARY EMBOLISM [None]
  - OEDEMA PERIPHERAL [None]
  - RESPIRATORY GAS EXCHANGE DISORDER [None]
  - TOTAL LUNG CAPACITY DECREASED [None]
  - PELVIC VENOUS THROMBOSIS [None]
  - LIMB DISCOMFORT [None]
  - VENA CAVA THROMBOSIS [None]
  - PAIN [None]
